FAERS Safety Report 16031781 (Version 2)
Quarter: 2019Q4

REPORT INFORMATION
  Report Type: Spontaneous
  Country: US (occurrence: US)
  Receive Date: 20190304
  Receipt Date: 20191015
  Transmission Date: 20200122
  Serious: Yes (Hospitalization, Disabling, Other)
  Sender: FDA-Public Use
  Company Number: US-ASTRAZENECA-2018SF14497

PATIENT
  Age: 56 Year
  Sex: Male
  Weight: 100.7 kg

DRUGS (32)
  1. CITALOPRAM [Concomitant]
     Active Substance: CITALOPRAM HYDROBROMIDE
     Indication: ANXIETY
  2. COREG [Concomitant]
     Active Substance: CARVEDILOL
     Indication: HYPERTENSION
  3. ASPIRIN. [Concomitant]
     Active Substance: ASPIRIN
  4. MEPERITAB [Concomitant]
     Active Substance: MEPERIDINE HYDROCHLORIDE
  5. FUROSEMIDE. [Concomitant]
     Active Substance: FUROSEMIDE
  6. DOXAZOSIN [Concomitant]
     Active Substance: DOXAZOSIN MESYLATE
  7. NORVASC [Concomitant]
     Active Substance: AMLODIPINE BESYLATE
  8. NEXIUM [Suspect]
     Active Substance: ESOMEPRAZOLE MAGNESIUM
     Indication: GASTROOESOPHAGEAL REFLUX DISEASE
     Route: 048
     Dates: start: 20001001
  9. NEXIUM [Suspect]
     Active Substance: ESOMEPRAZOLE MAGNESIUM
     Indication: GASTROOESOPHAGEAL REFLUX DISEASE
     Dosage: GENERIC
     Route: 065
     Dates: start: 2016, end: 201908
  10. KETOROLAC [Concomitant]
     Active Substance: KETOROLAC TROMETHAMINE
  11. ALLOPURINOL. [Concomitant]
     Active Substance: ALLOPURINOL
  12. DOXYCYCLIN [Concomitant]
     Active Substance: DOXYCYCLINE
  13. HYDROCODONE [Concomitant]
     Active Substance: HYDROCODONE
  14. HYDRALAZINE [Concomitant]
     Active Substance: HYDRALAZINE HYDROCHLORIDE
  15. PREDNISONE. [Concomitant]
     Active Substance: PREDNISONE
  16. NEXIUM [Suspect]
     Active Substance: ESOMEPRAZOLE MAGNESIUM
     Indication: GASTROOESOPHAGEAL REFLUX DISEASE
     Route: 048
     Dates: start: 2000, end: 2015
  17. FLEXERIL [Concomitant]
     Active Substance: CYCLOBENZAPRINE HYDROCHLORIDE
     Indication: MUSCLE SPASMS
  18. GABAPENTIN. [Concomitant]
     Active Substance: GABAPENTIN
     Indication: NEPHROPATHY
  19. ATORVASTATIN [Concomitant]
     Active Substance: ATORVASTATIN
     Indication: BLOOD CHOLESTEROL INCREASED
  20. TYLENOL [Concomitant]
     Active Substance: ACETAMINOPHEN
     Indication: BACK PAIN
  21. ATENOLOL. [Concomitant]
     Active Substance: ATENOLOL
  22. METFORMIN [Concomitant]
     Active Substance: METFORMIN HYDROCHLORIDE
  23. LANTUS [Concomitant]
     Active Substance: INSULIN GLARGINE
  24. GENTAMICIN. [Concomitant]
     Active Substance: GENTAMICIN
  25. ONDANSETRON [Concomitant]
     Active Substance: ONDANSETRON
  26. CITALOPRAM [Concomitant]
     Active Substance: CITALOPRAM HYDROBROMIDE
  27. LISINOPRIL. [Concomitant]
     Active Substance: LISINOPRIL
     Indication: BLOOD CHOLESTEROL INCREASED
  28. TRIAMCINOLON [Concomitant]
  29. CARVEDILOL. [Concomitant]
     Active Substance: CARVEDILOL
  30. AMLODIPINE [Concomitant]
     Active Substance: AMLODIPINE BESYLATE
     Indication: HYPERTENSION
  31. GLIPIZIDE. [Concomitant]
     Active Substance: GLIPIZIDE
  32. VIAGRA [Concomitant]
     Active Substance: SILDENAFIL CITRATE

REACTIONS (6)
  - Chronic kidney disease [Not Recovered/Not Resolved]
  - Depression [Unknown]
  - End stage renal disease [Not Recovered/Not Resolved]
  - Secondary hyperthyroidism [Unknown]
  - Anxiety [Unknown]
  - Nephrogenic anaemia [Unknown]

NARRATIVE: CASE EVENT DATE: 2012
